FAERS Safety Report 19730122 (Version 3)
Quarter: 2021Q3

REPORT INFORMATION
  Report Type: Spontaneous
  Country: US (occurrence: US)
  Receive Date: 20210821
  Receipt Date: 20210922
  Transmission Date: 20211014
  Serious: No
  Sender: FDA-Public Use
  Company Number: US-AMGEN INC.-USASP2021127606

PATIENT
  Age: 35 Year
  Sex: Female

DRUGS (2)
  1. AIMOVIG [Suspect]
     Active Substance: ERENUMAB-AOOE
     Indication: OCCIPITAL NEURALGIA
     Dosage: 70 MILLIGRAM, QMO
     Route: 065
     Dates: start: 202103
  2. AIMOVIG [Suspect]
     Active Substance: ERENUMAB-AOOE
     Indication: MIGRAINE

REACTIONS (3)
  - Migraine [Not Recovered/Not Resolved]
  - Therapeutic product effect incomplete [Unknown]
  - Injection site bruising [Recovered/Resolved]

NARRATIVE: CASE EVENT DATE: 202103
